FAERS Safety Report 12776019 (Version 1)
Quarter: 2016Q3

REPORT INFORMATION
  Report Type: Spontaneous
  Country: TH (occurrence: TH)
  Receive Date: 20160923
  Receipt Date: 20160923
  Transmission Date: 20161109
  Serious: Yes (Other)
  Sender: FDA-Public Use
  Company Number: TH-ASTELLAS-2016US036974

PATIENT
  Age: 8 Decade
  Sex: Female

DRUGS (1)
  1. BETMIGA [Suspect]
     Active Substance: MIRABEGRON
     Indication: HYPERTONIC BLADDER
     Route: 048

REACTIONS (3)
  - Capillary fragility [Recovered/Resolved]
  - Eye haemorrhage [Recovered/Resolved]
  - Hypertension [Recovered/Resolved]
